FAERS Safety Report 20321608 (Version 1)
Quarter: 2022Q1

REPORT INFORMATION
  Report Type: Spontaneous
  Country: US (occurrence: None)
  Receive Date: 20220110
  Receipt Date: 20220110
  Transmission Date: 20220424
  Serious: No
  Sender: FDA-Public Use
  Company Number: None

PATIENT
  Sex: Female

DRUGS (1)
  1. PLEGRIDY [Suspect]
     Active Substance: PEGINTERFERON BETA-1A
     Indication: Multiple sclerosis
     Dosage: OTHER QUANTITY : 125MCG;?OTHER FREQUENCY : EVERY 14 DAYS;?
     Route: 058
     Dates: start: 20211020

REACTIONS (3)
  - Chest pain [None]
  - Dyspnoea [None]
  - Cardiac disorder [None]
